FAERS Safety Report 9402185 (Version 2)
Quarter: 2013Q3

REPORT INFORMATION
  Report Type: Spontaneous
  Country: PA (occurrence: PA)
  Receive Date: 20130716
  Receipt Date: 20130731
  Transmission Date: 20140515
  Serious: Yes (Hospitalization)
  Sender: FDA-Public Use
  Company Number: PHHY2013PA074557

PATIENT
  Sex: Female

DRUGS (3)
  1. EXFORGE HCT [Suspect]
     Indication: HYPERTENSION
     Dosage: 1 DF (160 MG VALS, 5 MG AMLO12.5 MG HYDR), QD
     Route: 048
     Dates: start: 201302
  2. JASMINE [Concomitant]
     Dosage: UNK UKN, UNK
  3. METFORMIN [Concomitant]
     Dosage: 850 MG, QD
     Route: 048

REACTIONS (1)
  - Deep vein thrombosis [Unknown]
